FAERS Safety Report 25254863 (Version 1)
Quarter: 2025Q2

REPORT INFORMATION
  Report Type: Spontaneous
  Country: RU (occurrence: RU)
  Receive Date: 20250430
  Receipt Date: 20250430
  Transmission Date: 20250717
  Serious: Yes (Other)
  Sender: CSL BEHRING
  Company Number: RU-BEH-2025203398

PATIENT
  Age: 57 Year
  Sex: Female

DRUGS (4)
  1. VELPHORO [Suspect]
     Active Substance: SUCROFERRIC OXYHYDROXIDE
     Route: 048
  2. MOXONIDINE [Concomitant]
     Active Substance: MOXONIDINE
  3. NIFEDIPINE [Concomitant]
     Active Substance: NIFEDIPINE
  4. OMEPRAZOLE [Concomitant]
     Active Substance: OMEPRAZOLE

REACTIONS (1)
  - Generalised oedema [Unknown]
